FAERS Safety Report 17745215 (Version 1)
Quarter: 2020Q2

REPORT INFORMATION
  Report Type: Spontaneous
  Country: DE (occurrence: DE)
  Receive Date: 20200504
  Receipt Date: 20200504
  Transmission Date: 20200714
  Serious: Yes (Life-Threatening, Hospitalization, Other)
  Sender: FDA-Public Use
  Company Number: DE-AUROBINDO-AUR-APL-2020-020870

PATIENT
  Age: 70 Year
  Sex: Male
  Weight: 77 kg

DRUGS (4)
  1. JARDIANCE [Suspect]
     Active Substance: EMPAGLIFLOZIN
     Indication: TYPE 2 DIABETES MELLITUS
     Dosage: 10 MILLIGRAM, ONCE A DAY
     Route: 048
  2. GLIB S-RATIOPHARM [Concomitant]
     Indication: TYPE 2 DIABETES MELLITUS
     Dosage: 1 DOSAGE FORM, ONCE A DAY (INTAKE FOR SEVERAL YEARS)
     Route: 048
  3. METFORMIN [Suspect]
     Active Substance: METFORMIN HYDROCHLORIDE
     Indication: TYPE 2 DIABETES MELLITUS
     Dosage: 2000 MILLIGRAM, ONCE A DAY
     Route: 065
  4. METFORMIN [Suspect]
     Active Substance: METFORMIN HYDROCHLORIDE
     Dosage: 3000 MILLIGRAM, ONCE A DAY (DOSE INCREASED 10 DAYS AGO DUE TO BLOOD SUGAR DERAILMENT)
     Route: 065

REACTIONS (9)
  - Lactic acidosis [Recovered/Resolved]
  - Dizziness [Recovered/Resolved]
  - Diabetic coma [Recovered/Resolved]
  - Gastroenteritis [Unknown]
  - Toxicity to various agents [Unknown]
  - Acute kidney injury [Recovered/Resolved]
  - Ketoacidosis [Recovered/Resolved]
  - Thirst [Recovered/Resolved]
  - Hyperglycaemia [Recovered/Resolved]

NARRATIVE: CASE EVENT DATE: 20191011
